FAERS Safety Report 7028239-X (Version None)
Quarter: 2010Q4

REPORT INFORMATION
  Report Type: 
  Country: None (occurrence: None)
  Receive Date: 20101005
  Receipt Date: 20100922
  Transmission Date: 20110411
  Serious: Yes (Hospitalization, Other)
  Sender: FDA-Public Use
  Company Number: US-JNJFOC-20100508167

PATIENT
  Sex: Female
  Weight: 62.6 kg

DRUGS (17)
  1. REMICADE [Suspect]
     Indication: COLITIS ULCERATIVE
     Dosage: AMOUNT INFUSED WAS 100 MG (300 MG ^WASTED^)
     Route: 042
  2. REMICADE [Suspect]
     Route: 042
  3. REMICADE [Suspect]
     Route: 042
  4. FENTANYL [Concomitant]
     Route: 062
  5. DIPHENHYDRAMINE HCL [Concomitant]
     Indication: PREMEDICATION
     Route: 048
  6. PREDNISONE [Concomitant]
     Indication: PREMEDICATION
     Route: 048
  7. TYLENOL [Concomitant]
     Indication: PREMEDICATION
     Route: 048
  8. ASPIRIN [Concomitant]
     Route: 048
  9. CELEBREX [Concomitant]
     Route: 048
  10. METFORMIN HCL [Concomitant]
     Route: 048
  11. LISINOPRIL AND HYDROCHLOROTHIAZIDE [Concomitant]
     Dosage: DOSE STRENGTH IS 10-12.5 MG TABLET
     Route: 048
  12. GLYCOPYRROLATE [Concomitant]
     Route: 048
  13. POTASSIUM CHLORIDE [Concomitant]
     Route: 048
  14. FLUOXETINE HCL [Concomitant]
     Route: 048
  15. OXYCODONE HCL AND ACETAMINOPHEN [Concomitant]
     Dosage: DOSE STRENGTH IS 2.5-325MG TABLET
     Route: 048
  16. PENTASA [Concomitant]
     Route: 048
  17. PROTONIX [Concomitant]

REACTIONS (9)
  - ANAEMIA [None]
  - ANXIETY [None]
  - ASTHENIA [None]
  - CROHN'S DISEASE [None]
  - FEELING HOT [None]
  - HEART RATE INCREASED [None]
  - HYPOTENSION [None]
  - INFUSION RELATED REACTION [None]
  - PRURITUS GENERALISED [None]
